FAERS Safety Report 16989997 (Version 1)
Quarter: 2019Q4

REPORT INFORMATION
  Report Type: Spontaneous
  Country: US (occurrence: US)
  Receive Date: 20190919
  Receipt Date: 20190919
  Transmission Date: 20200122
  Serious: No
  Sender: FDA-Public Use
  Company Number: None

PATIENT
  Age: 57 Year
  Sex: Female
  Weight: 117.8 kg

DRUGS (16)
  1. MULTIPLE VITAMIN [Concomitant]
     Active Substance: VITAMINS
  2. OMEGA-3 ACIDS [Concomitant]
     Active Substance: OMEGA-3 FATTY ACIDS
  3. AMBIEN [Concomitant]
     Active Substance: ZOLPIDEM TARTRATE
  4. EFFEXOR XR [Concomitant]
     Active Substance: VENLAFAXINE HYDROCHLORIDE
  5. FLUTICASONE. [Concomitant]
     Active Substance: FLUTICASONE
  6. LORAZEPAM. [Concomitant]
     Active Substance: LORAZEPAM
  7. PROBIOTIC [Concomitant]
     Active Substance: PROBIOTICS NOS
  8. CALCIUM-VITAMIN D [Concomitant]
     Active Substance: CALCIUM\VITAMIN D
  9. CETIRIZINE [Concomitant]
     Active Substance: CETIRIZINE HYDROCHLORIDE
  10. NYSTAIN [Concomitant]
     Active Substance: NYSTATIN
  11. ASPIRIN (27223) [Suspect]
     Active Substance: ASPIRIN
     Dates: end: 20190911
  12. FUROSEMIDE. [Concomitant]
     Active Substance: FUROSEMIDE
  13. GABAPENTIN. [Concomitant]
     Active Substance: GABAPENTIN
  14. ANASTROZOLE. [Concomitant]
     Active Substance: ANASTROZOLE
  15. FUROSEMIDE. [Concomitant]
     Active Substance: FUROSEMIDE
  16. PROAIR HFA [Concomitant]
     Active Substance: ALBUTEROL SULFATE

REACTIONS (1)
  - Invasive lobular breast carcinoma [None]

NARRATIVE: CASE EVENT DATE: 20190912
